FAERS Safety Report 25179449 (Version 1)
Quarter: 2025Q2

REPORT INFORMATION
  Report Type: Spontaneous
  Country: CN (occurrence: CN)
  Receive Date: 20250409
  Receipt Date: 20250409
  Transmission Date: 20250717
  Serious: Yes (Other)
  Sender: BAYER
  Company Number: CN-BAYER-2025A043682

PATIENT
  Sex: Female

DRUGS (1)
  1. MIRENA [Suspect]
     Active Substance: LEVONORGESTREL
     Indication: Heavy menstrual bleeding
     Dosage: 20?G/DAY
     Route: 015
     Dates: start: 202410

REACTIONS (4)
  - Blood loss anaemia [None]
  - Heavy menstrual bleeding [None]
  - Thrombin-antithrombin III complex increased [None]
  - Wrong technique in device usage process [None]

NARRATIVE: CASE EVENT DATE: 20241001
